FAERS Safety Report 4571138-3 (Version None)
Quarter: 2005Q1

REPORT INFORMATION
  Report Type: 
  Country: None (occurrence: None)
  Receive Date: 20050202
  Receipt Date: 20041109
  Transmission Date: 20050727
  Serious: Yes (Hospitalization)
  Sender: FDA-Public Use
  Company Number: 2004092638

PATIENT
  Age: 54 Year
  Sex: Male

DRUGS (6)
  1. BLINDED THERAPY (BLINDED THERAPY) [Suspect]
     Indication: NON-SMALL CELL LUNG CANCER
     Dosage: 800 MG (400 MG, 2 IN 1 D), ORAL
     Route: 048
     Dates: start: 20040927
  2. DOCETAXEL (DOCETAXEL) (DOCETAXEL) [Suspect]
     Indication: NON-SMALL CELL LUNG CANCER
     Dosage: 75 MG/M*2 (75 MG/M*2, 1 IN 3 EK, INTRAVENOUS
     Route: 042
     Dates: start: 20040927
  3. CARBOPLATIN (CARBOPLATIN) (CARBOPLATIN) [Suspect]
     Indication: NON-SMALL CELL LUNG CANCER
     Dosage: 1 AUC X6 (1 AUC X6, 1 IN 3 WK), INTRAVENOUS
     Route: 042
     Dates: start: 20040927
  4. MORPHINE [Concomitant]
  5. OMEPRAZOLE [Concomitant]
  6. NULYTELY (MACROGOL,POTASSIUM CHLORIDE, SODIUM BICARBONATE, SODIUM CITR [Concomitant]

REACTIONS (1)
  - FEBRILE NEUTROPENIA [None]
